FAERS Safety Report 8575204 (Version 3)
Quarter: 2012Q4

REPORT INFORMATION
  Report Type: Report from Study
  Country: DE (occurrence: DE)
  Receive Date: 20120523
  Receipt Date: 20121015
  Transmission Date: 20130627
  Serious: Yes (Hospitalization, Disabling, Other)
  Sender: FDA-Public Use
  Company Number: DE-JNJFOC-20120512463

PATIENT
  Age: 13 Year
  Sex: Female
  Weight: 38.1 kg

DRUGS (1)
  1. REMICADE [Suspect]
     Indication: CROHN^S DISEASE
     Route: 042
     Dates: start: 20090702, end: 20110922

REACTIONS (1)
  - Obliterative bronchiolitis [Recovered/Resolved]
